FAERS Safety Report 6428728-2 (Version None)
Quarter: 2009Q4

REPORT INFORMATION
  Report Type: 
  Country: None (occurrence: None)
  Receive Date: 20091104
  Receipt Date: 20091104
  Transmission Date: 20100525
  Serious: Yes (Hospitalization)
  Sender: FDA-Public Use
  Company Number: None

PATIENT
  Age: 37 Year
  Sex: Male

DRUGS (2)
  1. METHADONE HCL [Suspect]
     Indication: PAIN
     Dosage: 10 MG TID PO
     Route: 048
     Dates: start: 20090908, end: 20090914
  2. DIAZEPAM [Suspect]
     Indication: MULTIPLE SCLEROSIS
     Dates: start: 20090913, end: 20090914

REACTIONS (1)
  - SOMNOLENCE [None]
